FAERS Safety Report 4641071-7 (Version None)
Quarter: 2005Q2

REPORT INFORMATION
  Report Type: 
  Country: None (occurrence: None)
  Receive Date: 20050419
  Receipt Date: 20050419
  Transmission Date: 20051028
  Serious: Yes (Death)
  Sender: FDA-Public Use
  Company Number: None

PATIENT
  Age: 15 Month
  Sex: Male
  Weight: 8 kg

DRUGS (1)
  1. PHYTONADIONE [Suspect]
     Dosage: 1MG   DAILY   INTRAVENOU
     Route: 042

REACTIONS (11)
  - BLOODY DISCHARGE [None]
  - BRADYCARDIA [None]
  - CORONARY ARTERY OCCLUSION [None]
  - INTERNATIONAL NORMALISED RATIO INCREASED [None]
  - OXYGEN SATURATION DECREASED [None]
  - PROTHROMBIN TIME PROLONGED [None]
  - PYREXIA [None]
  - RASH [None]
  - RESPIRATORY FAILURE [None]
  - VENTRICULAR EXTRASYSTOLES [None]
  - VENTRICULAR FIBRILLATION [None]
